FAERS Safety Report 9893980 (Version 1)
Quarter: 2014Q1

REPORT INFORMATION
  Report Type: Spontaneous
  Country: US (occurrence: US)
  Receive Date: 20140213
  Receipt Date: 20140213
  Transmission Date: 20141002
  Serious: No
  Sender: FDA-Public Use
  Company Number: US-PFIZER INC-2014039742

PATIENT
  Age: 48 Year
  Sex: Female
  Weight: 74.83 kg

DRUGS (5)
  1. EFFEXOR XR [Suspect]
     Indication: DEPRESSION
     Dosage: 37.5 MG, DAILY
  2. EFFEXOR XR [Suspect]
     Dosage: 75 MG, DAILY
  3. EFFEXOR XR [Suspect]
     Dosage: 37.5 MG, DAILY
     Dates: start: 201402
  4. LIPITOR [Concomitant]
     Indication: BLOOD CHOLESTEROL ABNORMAL
     Dosage: 80 MG, DAILY
  5. LISINOPRIL W/HYDROCHLOROTHIAZIDE [Concomitant]
     Indication: HYPERTENSION
     Dosage: UNK, DAILY

REACTIONS (11)
  - Malaise [Unknown]
  - Abdominal discomfort [Unknown]
  - Vomiting [Unknown]
  - Palpitations [Unknown]
  - Anxiety [Unknown]
  - Weight decreased [Unknown]
  - Activities of daily living impaired [Unknown]
  - Feeling abnormal [Unknown]
  - Nausea [Unknown]
  - Eating disorder [Unknown]
  - Drug intolerance [Unknown]
